FAERS Safety Report 11809868 (Version 1)
Quarter: 2015Q4

REPORT INFORMATION
  Report Type: Spontaneous
  Country: US (occurrence: None)
  Receive Date: 20151207
  Receipt Date: 20151207
  Transmission Date: 20160305
  Serious: No
  Sender: FDA-Public Use
  Company Number: None

PATIENT
  Age: 22 Year
  Sex: Female
  Weight: 68.04 kg

DRUGS (4)
  1. SPRINTEC [Suspect]
     Active Substance: ETHINYL ESTRADIOL\NORGESTIMATE
     Indication: ACNE
     Dosage: 1 PILL
     Route: 048
  2. VIT C AND D [Concomitant]
  3. SOLODYNE [Concomitant]
  4. SPRINTEC [Suspect]
     Active Substance: ETHINYL ESTRADIOL\NORGESTIMATE
     Indication: CONTRACEPTION
     Dosage: 1 PILL
     Route: 048

REACTIONS (4)
  - Anxiety [None]
  - Panic attack [None]
  - Initial insomnia [None]
  - Fear [None]

NARRATIVE: CASE EVENT DATE: 20151203
